FAERS Safety Report 17746860 (Version 2)
Quarter: 2020Q2

REPORT INFORMATION
  Report Type: Spontaneous
  Country: GB (occurrence: GB)
  Receive Date: 20200505
  Receipt Date: 20200520
  Transmission Date: 20200714
  Serious: Yes (Other)
  Sender: FDA-Public Use
  Company Number: GB-MYLANLABS-2020M1043370

PATIENT
  Age: 47 Year
  Sex: Male
  Weight: 95.2 kg

DRUGS (3)
  1. ATORVASTATIN [Concomitant]
     Active Substance: ATORVASTATIN
     Indication: BLOOD CHOLESTEROL INCREASED
     Dosage: 20 MILLIGRAM, QD
     Route: 048
     Dates: start: 2016
  2. OMEPRAZOLE. [Suspect]
     Active Substance: OMEPRAZOLE
     Indication: DYSPEPSIA
     Dosage: 20 MILLIGRAM, QD
     Route: 048
     Dates: start: 2008, end: 2009
  3. OMEPRAZOLE. [Suspect]
     Active Substance: OMEPRAZOLE
     Indication: HIATUS HERNIA
     Dosage: 20 GRAM, QD
     Route: 048
     Dates: start: 2008

REACTIONS (8)
  - Pruritus [Unknown]
  - Social avoidant behaviour [Unknown]
  - Weight decreased [Unknown]
  - Renal injury [Unknown]
  - Chronic kidney disease [Recovered/Resolved with Sequelae]
  - Kidney fibrosis [Unknown]
  - Off label use [Unknown]
  - Rash [Unknown]
